FAERS Safety Report 16373839 (Version 1)
Quarter: 2019Q2

REPORT INFORMATION
  Report Type: Spontaneous
  Country: FR (occurrence: FR)
  Receive Date: 20190530
  Receipt Date: 20190530
  Transmission Date: 20190711
  Serious: Yes (Hospitalization, Other)
  Sender: FDA-Public Use
  Company Number: FR-SA-2019SA054448

PATIENT
  Age: 29 Year
  Sex: Male

DRUGS (2)
  1. FABRAZYME [Suspect]
     Active Substance: AGALSIDASE BETA
     Dosage: 70 MG
     Route: 041
     Dates: start: 20181215, end: 20190213
  2. FABRAZYME [Suspect]
     Active Substance: AGALSIDASE BETA
     Dosage: 70 MG
     Route: 041
     Dates: start: 20190213, end: 20190213

REACTIONS (13)
  - Hyperthermia [Unknown]
  - Myalgia [Recovered/Resolved]
  - Abdominal pain [Recovered/Resolved]
  - Neutrophil count abnormal [Unknown]
  - Pain in extremity [Recovered/Resolved]
  - Hypersensitivity [Unknown]
  - Pyrexia [Recovered/Resolved]
  - Headache [Recovered/Resolved]
  - Eosinophil count abnormal [Unknown]
  - Pain [Unknown]
  - Arthralgia [Recovered/Resolved]
  - Hospitalisation [Unknown]
  - Back pain [Recovered/Resolved]

NARRATIVE: CASE EVENT DATE: 20190213
